FAERS Safety Report 5199964-0 (Version None)
Quarter: 2007Q1

REPORT INFORMATION
  Report Type: 
  Country: None (occurrence: None)
  Receive Date: 20070103
  Receipt Date: 20061220
  Transmission Date: 20070707
  Serious: Yes (Other)
  Sender: FDA-Public Use
  Company Number: 06H-163-0311578-00

PATIENT
  Age: 70 Year
  Sex: Female

DRUGS (3)
  1. DOBUTAMINE HCL [Suspect]
     Indication: STRESS ECHOCARDIOGRAM
     Dosage: 30 MCG/KG/MIN
  2. PERFLUTREN (CONTRAST MEDIA) [Concomitant]
  3. AMYL NITRATE [Concomitant]

REACTIONS (3)
  - LEFT VENTRICLE OUTFLOW TRACT OBSTRUCTION [None]
  - MYOCARDIAL INFARCTION [None]
  - MYOCARDIAL ISCHAEMIA [None]
